FAERS Safety Report 26028114 (Version 1)
Quarter: 2025Q4

REPORT INFORMATION
  Report Type: Report from Study
  Country: CA (occurrence: CA)
  Receive Date: 20251111
  Receipt Date: 20251111
  Transmission Date: 20260118
  Serious: Yes (Other)
  Sender: ABBVIE
  Company Number: CA-ABBVIE-6534035

PATIENT
  Age: 55 Year
  Sex: Male

DRUGS (1)
  1. SKYRIZI [Suspect]
     Active Substance: RISANKIZUMAB-RZAA
     Indication: Crohn^s disease
     Route: 042
     Dates: start: 20250904

REACTIONS (8)
  - Pyoderma gangrenosum [Unknown]
  - Rash papular [Unknown]
  - Drug ineffective [Unknown]
  - Skin fissures [Not Recovered/Not Resolved]
  - Uveitis [Unknown]
  - Erythema nodosum [Unknown]
  - Anal fissure [Unknown]
  - Dry skin [Not Recovered/Not Resolved]

NARRATIVE: CASE EVENT DATE: 20250101
